FAERS Safety Report 19934928 (Version 7)
Quarter: 2022Q4

REPORT INFORMATION
  Report Type: Spontaneous
  Country: US (occurrence: US)
  Receive Date: 20211008
  Receipt Date: 20221220
  Transmission Date: 20230113
  Serious: Yes (Hospitalization, Other)
  Sender: FDA-Public Use
  Company Number: US-BLUEPRINT MEDICINES CORPORATION-SP-US-2021-001659

PATIENT
  Sex: Male

DRUGS (4)
  1. AYVAKIT [Suspect]
     Active Substance: AVAPRITINIB
     Indication: Gastrointestinal stromal tumour
     Route: 048
     Dates: start: 20210809
  2. AYVAKIT [Suspect]
     Active Substance: AVAPRITINIB
     Route: 048
     Dates: start: 20210810
  3. AYVAKIT [Suspect]
     Active Substance: AVAPRITINIB
     Route: 048
     Dates: start: 20210810
  4. AYVAKIT [Suspect]
     Active Substance: AVAPRITINIB
     Route: 048
     Dates: start: 20210810

REACTIONS (14)
  - Feeling cold [Unknown]
  - Balance disorder [Unknown]
  - Ocular hyperaemia [Unknown]
  - Feeling abnormal [Unknown]
  - Cerebral haemorrhage [Unknown]
  - Memory impairment [Unknown]
  - Headache [Unknown]
  - Diarrhoea [Unknown]
  - Paraesthesia [Unknown]
  - Neuralgia [Unknown]
  - Pain in extremity [Unknown]
  - Fatigue [Unknown]
  - Taste disorder [Unknown]
  - Back pain [Unknown]
